FAERS Safety Report 13045699 (Version 2)
Quarter: 2017Q1

REPORT INFORMATION
  Report Type: Spontaneous
  Country: JP (occurrence: JP)
  Receive Date: 20161220
  Receipt Date: 20170104
  Transmission Date: 20170428
  Serious: Yes (Death, Other)
  Sender: FDA-Public Use
  Company Number: JP-INCYTE CORPORATION-2016IN008073

PATIENT
  Age: 72 Year
  Sex: Female

DRUGS (1)
  1. JAKAVI [Suspect]
     Active Substance: RUXOLITINIB
     Indication: PRIMARY MYELOFIBROSIS
     Dosage: 5 MG, BID
     Route: 048
     Dates: start: 20141208, end: 20150511

REACTIONS (5)
  - Skin lesion [Unknown]
  - Plasmacytoma [Unknown]
  - Altered state of consciousness [Unknown]
  - Myelofibrosis [Fatal]
  - Gastric haemorrhage [Unknown]
